FAERS Safety Report 9689154 (Version 2)
Quarter: 2013Q4

REPORT INFORMATION
  Report Type: Report from Study
  Country: US (occurrence: US)
  Receive Date: 20131114
  Receipt Date: 20131126
  Transmission Date: 20140711
  Serious: No
  Sender: FDA-Public Use
  Company Number: US-VERTEX PHARMACEUTICALS INC-2013-010978

PATIENT
  Age: 51 Year
  Sex: Female
  Weight: 85 kg

DRUGS (5)
  1. VX-950 (TELAPREVIR) [Suspect]
     Indication: HEPATITIS C
     Dosage: 750 MG, EVERY 5 HOURS
     Dates: start: 20131101, end: 20131103
  2. VX-950 (TELAPREVIR) [Suspect]
     Dosage: 750 MG, TID
     Dates: start: 20131104, end: 20131108
  3. VX-950 (TELAPREVIR) [Suspect]
     Dosage: 750 MG, TID
     Route: 048
     Dates: start: 20131109
  4. COPEGUS [Suspect]
     Indication: HEPATITIS C
     Dosage: 1000 MG, QD
     Dates: start: 20131101
  5. PEGASYS [Suspect]
     Indication: HEPATITIS C
     Dosage: 180 ?G, QW
     Route: 058
     Dates: start: 20131101

REACTIONS (2)
  - Inappropriate schedule of drug administration [Recovered/Resolved]
  - Vaginal haemorrhage [Unknown]
